FAERS Safety Report 7126660-2 (Version None)
Quarter: 2010Q4

REPORT INFORMATION
  Report Type: 
  Country: None (occurrence: None)
  Receive Date: 20101129
  Receipt Date: 20101117
  Transmission Date: 20110411
  Serious: Yes (Other)
  Sender: FDA-Public Use
  Company Number: JP-ROCHE-744172

PATIENT
  Age: 66 Year
  Sex: Female

DRUGS (3)
  1. XELODA [Suspect]
     Indication: BREAST CANCER
     Route: 048
  2. TAXOTERE [Concomitant]
     Dosage: DOSAGE IS UNCERTAIN.
     Route: 041
  3. CYCLOPHOSPHAMIDE [Concomitant]
     Dosage: DOSAGE IS UNCERTAIN.
     Route: 041

REACTIONS (2)
  - FEBRILE NEUTROPENIA [None]
  - NAUSEA [None]
